FAERS Safety Report 4307740-3 (Version None)
Quarter: 2004Q1

REPORT INFORMATION
  Report Type: 
  Country: None (occurrence: None)
  Receive Date: 20040225
  Receipt Date: 20030221
  Transmission Date: 20041129
  Serious: Yes (Hospitalization)
  Sender: FDA-Public Use
  Company Number: WAES 0302USA02516

PATIENT
  Age: 72 Year
  Sex: Male

DRUGS (12)
  1. ZOCOR [Suspect]
     Indication: HYPERLIPIDAEMIA
     Dosage: SEE IMAGE
     Route: 048
     Dates: start: 20001018, end: 20001116
  2. ZOCOR [Suspect]
     Indication: HYPERLIPIDAEMIA
     Dosage: SEE IMAGE
     Route: 048
     Dates: start: 20010209, end: 20010321
  3. ZOCOR [Suspect]
     Indication: HYPERLIPIDAEMIA
     Dosage: SEE IMAGE
     Route: 048
     Dates: start: 20001117
  4. GEMFIBROZIL [Suspect]
     Dosage: 600 MG/BID/PO
     Route: 048
     Dates: end: 20011017
  5. GEMFIBROZIL [Suspect]
     Dosage: 600 MG/BID/PO
     Route: 048
     Dates: start: 20010209
  6. ECOTRIN [Concomitant]
  7. MAXZIDE [Concomitant]
  8. PRAVACHOL [Concomitant]
  9. ATENOLOL [Concomitant]
  10. DILTIAZEM HYDROCHLORIDE [Concomitant]
  11. GLYBURIDE [Concomitant]
  12. LISINOPRIL [Concomitant]

REACTIONS (4)
  - DRUG INTERACTION [None]
  - MEDICATION ERROR [None]
  - RENAL FAILURE ACUTE [None]
  - RHABDOMYOLYSIS [None]
